FAERS Safety Report 4457427-1 (Version None)
Quarter: 2004Q3

REPORT INFORMATION
  Report Type: 
  Country: None (occurrence: None)
  Receive Date: 20040831
  Receipt Date: 20031007
  Transmission Date: 20050211
  Serious: Yes (Hospitalization)
  Sender: FDA-Public Use
  Company Number: 348911

PATIENT
  Age: 68 Year
  Sex: Female

DRUGS (3)
  1. CELLCEPT [Suspect]
     Indication: MUSCLE DISORDER
     Dosage: 500 MG 2 PER DAY ORAL
     Route: 048
     Dates: start: 20030915, end: 20030915
  2. ASPIRIN [Concomitant]
  3. STOMACH MEDICATION (STOMACH MEDICATION NOS) [Concomitant]

REACTIONS (4)
  - ASTHENIA [None]
  - DEHYDRATION [None]
  - DIARRHOEA [None]
  - VOMITING [None]
